FAERS Safety Report 18792741 (Version 4)
Quarter: 2021Q1

REPORT INFORMATION
  Report Type: Report from Study
  Country: US (occurrence: US)
  Receive Date: 20210127
  Receipt Date: 20210308
  Transmission Date: 20210419
  Serious: No
  Sender: FDA-Public Use
  Company Number: US-B.I. PHARMACEUTICALS,INC./RIDGEFIELD-2021-BI-078554

PATIENT
  Age: 68 Year
  Sex: Female

DRUGS (3)
  1. CRESTOR [Concomitant]
     Active Substance: ROSUVASTATIN CALCIUM
     Indication: PRODUCT USED FOR UNKNOWN INDICATION
     Route: 065
  2. OFEV [Suspect]
     Active Substance: NINTEDANIB
     Indication: INTERSTITIAL LUNG DISEASE
  3. OFEV [Suspect]
     Active Substance: NINTEDANIB
     Indication: IDIOPATHIC PULMONARY FIBROSIS
     Dosage: 100MG PO TWICE A DAY
     Route: 048
     Dates: start: 202011, end: 20210205

REACTIONS (8)
  - Hypoxia [Not Recovered/Not Resolved]
  - Vomiting [Recovered/Resolved]
  - Nausea [Unknown]
  - Dyspnoea [Not Recovered/Not Resolved]
  - Dyspnoea exertional [Not Recovered/Not Resolved]
  - Depression [Not Recovered/Not Resolved]
  - Chromaturia [Unknown]
  - Fatigue [Unknown]

NARRATIVE: CASE EVENT DATE: 202101
